FAERS Safety Report 25057676 (Version 1)
Quarter: 2025Q1

REPORT INFORMATION
  Report Type: Spontaneous
  Country: JP (occurrence: JP)
  Receive Date: 20250310
  Receipt Date: 20250310
  Transmission Date: 20250409
  Serious: Yes (Hospitalization)
  Sender: NOVITIUM PHARMA
  Company Number: JP-NOVITIUMPHARMA-2025JPNVP00595

PATIENT
  Age: 1 Year
  Sex: Female

DRUGS (8)
  1. DEXAMETHASONE [Suspect]
     Active Substance: DEXAMETHASONE
     Indication: Haemophagocytic lymphohistiocytosis
  2. DEXAMETHASONE [Suspect]
     Active Substance: DEXAMETHASONE
     Indication: Interstitial lung disease
  3. DEXAMETHASONE [Suspect]
     Active Substance: DEXAMETHASONE
  4. PREDNISOLONE [Concomitant]
     Active Substance: PREDNISOLONE
     Indication: B-cell type acute leukaemia
  5. ETOPOSIDE [Concomitant]
     Active Substance: ETOPOSIDE
     Indication: Haemophagocytic lymphohistiocytosis
  6. VINCRISTINE [Concomitant]
     Active Substance: VINCRISTINE
     Indication: B-cell type acute leukaemia
  7. PIRARUBICIN [Concomitant]
     Active Substance: PIRARUBICIN
     Indication: B-cell type acute leukaemia
  8. CYCLOSPORINE [Concomitant]
     Active Substance: CYCLOSPORINE
     Indication: Haemophagocytic lymphohistiocytosis

REACTIONS (1)
  - Rebound effect [Unknown]
